FAERS Safety Report 15284516 (Version 1)
Quarter: 2018Q3

REPORT INFORMATION
  Report Type: Spontaneous
  Country: US (occurrence: US)
  Receive Date: 20180801
  Receipt Date: 20180801
  Transmission Date: 20181010
  Serious: Yes (Disabling)
  Sender: FDA-Public Use
  Company Number: None

PATIENT
  Age: 71 Year
  Sex: Female
  Weight: 108 kg

DRUGS (8)
  1. NOVOLIN 70/30 [Concomitant]
     Active Substance: INSULIN HUMAN
  2. METOPROLOL. [Concomitant]
     Active Substance: METOPROLOL
  3. VITAMINS [Concomitant]
     Active Substance: VITAMINS
  4. COMBIVENT [Concomitant]
     Active Substance: ALBUTEROL SULFATE\IPRATROPIUM BROMIDE
  5. ADVAIR HFA [Concomitant]
     Active Substance: FLUTICASONE PROPIONATE\SALMETEROL XINAFOATE
  6. VALSARTAN HCTZ [Suspect]
     Active Substance: HYDROCHLOROTHIAZIDE\VALSARTAN
     Indication: HYPERTENSION
     Dosage: ?          QUANTITY:1 DF DOSAGE FORM;?
     Route: 048
  7. FUROSEMIDE. [Concomitant]
     Active Substance: FUROSEMIDE
  8. HYDROCODONE [Concomitant]
     Active Substance: HYDROCODONE

REACTIONS (4)
  - Arthralgia [None]
  - Mobility decreased [None]
  - Myalgia [None]
  - Respiratory disorder [None]

NARRATIVE: CASE EVENT DATE: 20180701
